FAERS Safety Report 5127235-7 (Version None)
Quarter: 2006Q4

REPORT INFORMATION
  Report Type: 
  Country: None (occurrence: None)
  Receive Date: 20061010
  Receipt Date: 20060929
  Transmission Date: 20070319
  Serious: Yes (Other)
  Sender: FDA-Public Use
  Company Number: 14844

PATIENT
  Age: 64 Year
  Sex: Male

DRUGS (7)
  1. METHOTREXATE [Suspect]
     Indication: RHEUMATOID ARTHRITIS
     Dosage: 20 MG WEEKLY; UNK
  2. METHOTREXATE [Suspect]
     Indication: RHEUMATOID ARTHRITIS
     Dosage: 2.5 MG, WEEKLY, UNK
  3. BETAMETHASONE [Concomitant]
  4. HYDROXYCHLOROQUINE SULFATE [Concomitant]
  5. CELECOXIB [Concomitant]
  6. FOLIC ACID [Concomitant]
  7. GOLD [Concomitant]

REACTIONS (1)
  - B-CELL LYMPHOMA [None]
